FAERS Safety Report 5654205-2 (Version None)
Quarter: 2008Q1

REPORT INFORMATION
  Report Type: 
  Country: None (occurrence: None)
  Receive Date: 20080306
  Receipt Date: 20080304
  Transmission Date: 20080703
  Serious: No
  Sender: FDA-Public Use
  Company Number: US-BOEHRINGER INGELHEIM GMBH, GERMANY-2008-BP-00430BP

PATIENT
  Age: 64 Year
  Sex: Male

DRUGS (2)
  1. MICARDIS [Suspect]
     Indication: HYPERTENSION
     Route: 048
     Dates: start: 20070401
  2. ATENOLOL [Concomitant]
     Indication: HYPERTENSION

REACTIONS (6)
  - BACK PAIN [None]
  - FATIGUE [None]
  - FEELING ABNORMAL [None]
  - HYPOAESTHESIA [None]
  - NECK PAIN [None]
  - VISUAL DISTURBANCE [None]
